FAERS Safety Report 25441483 (Version 2)
Quarter: 2025Q2

REPORT INFORMATION
  Report Type: Report from Study
  Country: CN (occurrence: CN)
  Receive Date: 20250616
  Receipt Date: 20250623
  Transmission Date: 20250716
  Serious: Yes (Other)
  Sender: ALEXION PHARMACEUTICALS
  Company Number: CN-AstraZeneca-CH-00764883A

PATIENT
  Age: 57 Year

DRUGS (1)
  1. OSIMERTINIB [Suspect]
     Active Substance: OSIMERTINIB
     Indication: Lung neoplasm malignant
     Route: 065

REACTIONS (7)
  - Blood creatinine increased [Unknown]
  - Renal impairment [Unknown]
  - Blood creatinine decreased [Unknown]
  - Platelet count decreased [Recovered/Resolved]
  - Abdominal discomfort [Unknown]
  - Eczema [Unknown]
  - Dry skin [Unknown]
